FAERS Safety Report 17668766 (Version 1)
Quarter: 2020Q2

REPORT INFORMATION
  Report Type: Spontaneous
  Country: US (occurrence: US)
  Receive Date: 20200415
  Receipt Date: 20200415
  Transmission Date: 20200713
  Serious: Yes (Other)
  Sender: FDA-Public Use
  Company Number: US-TEVA-2020-US-1221422

PATIENT
  Sex: Male

DRUGS (1)
  1. FENTANYL. [Suspect]
     Active Substance: FENTANYL
     Route: 065

REACTIONS (6)
  - Drug dependence [Unknown]
  - Adverse reaction [Unknown]
  - Withdrawal syndrome [Unknown]
  - Insomnia [Unknown]
  - Hyperhidrosis [Unknown]
  - Chills [Unknown]
